FAERS Safety Report 8554730-0 (Version None)
Quarter: 2012Q3

REPORT INFORMATION
  Report Type: 
  Country: None (occurrence: None)
  Receive Date: 20120731
  Receipt Date: 20120123
  Transmission Date: 20120928
  Serious: Yes (Other)
  Sender: FDA-Public Use
  Company Number: CHPA2012US013988

PATIENT
  Age: 52 Year
  Sex: Male

DRUGS (2)
  1. ASPIRIN [Suspect]
     Dosage: UNK, UNK
  2. EXCEDRIN EXTRA STRENGTH TABLETS [Suspect]
     Indication: HEADACHE
     Dosage: UNK DF, PRN
     Route: 048

REACTIONS (6)
  - BLOOD PRESSURE ABNORMAL [None]
  - CHEST PAIN [None]
  - HEART RATE IRREGULAR [None]
  - DYSPNOEA [None]
  - DIZZINESS [None]
  - FEELING ABNORMAL [None]
